FAERS Safety Report 12418575 (Version 1)
Quarter: 2016Q2

REPORT INFORMATION
  Report Type: Spontaneous
  Country: US (occurrence: US)
  Receive Date: 20160531
  Receipt Date: 20160531
  Transmission Date: 20160815
  Serious: No
  Sender: FDA-Public Use
  Company Number: US-009507513-1605USA010301

PATIENT
  Age: 76 Year
  Sex: Female

DRUGS (3)
  1. FOSAMAX PLUS D [Suspect]
     Active Substance: ALENDRONATE SODIUM\CHOLECALCIFEROL
     Indication: PELVIC FRACTURE
  2. FOSAMAX PLUS D [Suspect]
     Active Substance: ALENDRONATE SODIUM\CHOLECALCIFEROL
     Indication: OSTEOPOROSIS
     Dosage: STRENGHT: 70 MG/ 5600 IU
     Route: 048
     Dates: start: 201604, end: 2016
  3. IBUPROFEN. [Concomitant]
     Active Substance: IBUPROFEN

REACTIONS (4)
  - Myalgia [Recovering/Resolving]
  - Drug administration error [Unknown]
  - Headache [Recovering/Resolving]
  - Arthralgia [Recovering/Resolving]

NARRATIVE: CASE EVENT DATE: 2016
